FAERS Safety Report 10701099 (Version 1)
Quarter: 2014Q4

REPORT INFORMATION
  Report Type: Spontaneous
  Country: US (occurrence: None)
  Receive Date: 20141224
  Receipt Date: 20141224
  Transmission Date: 20150529
  Serious: Yes (Other)
  Sender: FDA-Public Use
  Company Number: PHEN2014US020630

PATIENT
  Age: 49 Year
  Sex: Male

DRUGS (3)
  1. KEPRA (LEVETIRACETAM) [Concomitant]
  2. CARBAMAZEPINE (CARBAMAZEPINE) [Concomitant]
     Active Substance: CARBAMAZEPINE
  3. AFINITOR [Suspect]
     Active Substance: EVEROLIMUS
     Indication: TUBEROUS SCLEROSIS
     Route: 048
     Dates: start: 201406

REACTIONS (1)
  - Seizure [None]

NARRATIVE: CASE EVENT DATE: 20140914
